FAERS Safety Report 4988674-8 (Version None)
Quarter: 2006Q2

REPORT INFORMATION
  Report Type: 
  Country: None (occurrence: None)
  Receive Date: 20060502
  Receipt Date: 20050919
  Transmission Date: 20061013
  Serious: Yes (Hospitalization, Disabling, Other)
  Sender: FDA-Public Use
  Company Number: US-MERCK-0509USA02842

PATIENT
  Age: 69 Year
  Sex: Female
  Weight: 132 kg

DRUGS (1)
  1. VIOXX [Suspect]
     Indication: ARTHRITIS
     Route: 048
     Dates: end: 20040901

REACTIONS (11)
  - AORTIC ANEURYSM [None]
  - CARDIAC FAILURE [None]
  - CEREBROVASCULAR ACCIDENT [None]
  - CHEST PAIN [None]
  - HEPATOCELLULAR DAMAGE [None]
  - HERNIA [None]
  - MYOCARDIAL INFARCTION [None]
  - RENAL INJURY [None]
  - SKIN INJURY [None]
  - THROMBOSIS [None]
  - ULCER [None]
